FAERS Safety Report 5981866-0 (Version None)
Quarter: 2008Q4

REPORT INFORMATION
  Report Type: 
  Country: None (occurrence: None)
  Receive Date: 20081202
  Receipt Date: 20081119
  Transmission Date: 20090506
  Serious: Yes (Other)
  Sender: FDA-Public Use
  Company Number: 230641K08USA

PATIENT
  Age: 57 Year
  Sex: Female
  Weight: 64 kg

DRUGS (6)
  1. REBIF [Suspect]
     Indication: MULTIPLE SCLEROSIS
     Dosage: 44 MCG, 3 IN 1 WEEKS, SUBCUTANEOUS
     Route: 058
     Dates: start: 20070412
  2. CLONAZEPAM [Concomitant]
  3. PROVIGIL [Concomitant]
  4. AMBIEN [Concomitant]
  5. LYRICA [Concomitant]
  6. NEXIUM [Concomitant]

REACTIONS (1)
  - GALLBLADDER POLYP [None]
